FAERS Safety Report 5767218-7 (Version None)
Quarter: 2008Q2

REPORT INFORMATION
  Report Type: 
  Country: None (occurrence: None)
  Receive Date: 20080606
  Receipt Date: 20080526
  Transmission Date: 20081010
  Serious: Yes (Death)
  Sender: FDA-Public Use
  Company Number: PHO-2008-033

PATIENT
  Age: 83 Year
  Sex: Female

DRUGS (1)
  1. PHOTOFRIN [Suspect]

REACTIONS (1)
  - COLONIC STENOSIS [None]
